FAERS Safety Report 4709700-7 (Version None)
Quarter: 2005Q2

REPORT INFORMATION
  Report Type: 
  Country: None (occurrence: None)
  Receive Date: 20050629
  Receipt Date: 20050509
  Transmission Date: 20051028
  Serious: No
  Sender: FDA-Public Use
  Company Number: 05P-163-0300038-00

PATIENT
  Age: 74 Year
  Sex: Female
  Weight: 54.4316 kg

DRUGS (7)
  1. HUMIRA [Suspect]
     Indication: RHEUMATOID ARTHRITIS
     Dosage: 40 MG, SUCUTANEOUS
     Route: 058
     Dates: start: 20050401
  2. PREDNISONE TAB [Concomitant]
  3. HYDROXYCHLOROQUINE SULFATE [Concomitant]
  4. METOPROLOL TARTRATE [Concomitant]
  5. MULTI-VITAMINS [Concomitant]
  6. IRON [Concomitant]
  7. LEFLUNOMIDE [Concomitant]

REACTIONS (2)
  - ARTHRALGIA [None]
  - SHOULDER PAIN [None]
